FAERS Safety Report 13575247 (Version 2)
Quarter: 2017Q2

REPORT INFORMATION
  Report Type: Report from Study
  Country: JP (occurrence: JP)
  Receive Date: 20170524
  Receipt Date: 20170605
  Transmission Date: 20170830
  Serious: Yes (Hospitalization, Other)
  Sender: FDA-Public Use
  Company Number: JP-AMGEN-JPNCT2016038323

PATIENT
  Age: 66 Year
  Sex: Female
  Weight: 49 kg

DRUGS (24)
  1. 5-FU                               /00098801/ [Concomitant]
     Active Substance: FLUOROURACIL
     Dosage: 3500 MG, Q2WEEKS
     Route: 041
     Dates: start: 20151221, end: 20160229
  2. 5-FU                               /00098801/ [Concomitant]
     Active Substance: FLUOROURACIL
     Dosage: 2370.3 MG/M2, Q2WEEKS
     Route: 041
     Dates: start: 20160411, end: 20160411
  3. CALCIUM LEVOFOLINATE [Concomitant]
     Active Substance: LEVOLEUCOVORIN CALCIUM
     Dosage: 275 MG, Q2WEEKS
     Route: 041
     Dates: start: 20160502, end: 20160502
  4. HIRUDOID                           /00723702/ [Concomitant]
     Active Substance: GLYCOSAMINOGLYCANS
     Indication: SKIN DISORDER
     Dosage: UNK, QD
     Route: 062
     Dates: start: 20160201
  5. PANITUMUMAB [Suspect]
     Active Substance: PANITUMUMAB
     Indication: COLON CANCER
     Dosage: 290 MG, Q2WEEKS
     Route: 041
     Dates: start: 20151221, end: 20160229
  6. OXALIPLATIN. [Concomitant]
     Active Substance: OXALIPLATIN
     Dosage: 81.5 MG/M2, Q2WEEKS
     Route: 041
     Dates: start: 20160411, end: 20160502
  7. CALCIUM LEVOFOLINATE [Concomitant]
     Active Substance: LEVOLEUCOVORIN CALCIUM
     Dosage: UNK UNK, Q2WEEKS
     Route: 041
     Dates: start: 20160411, end: 20160502
  8. CALCIUM LEVOFOLINATE [Concomitant]
     Active Substance: LEVOLEUCOVORIN CALCIUM
     Dosage: UNK UNK, Q2WEEKS
     Route: 041
     Dates: start: 20160411, end: 20160411
  9. MINOCYCLINE HYDROCHLORIDE. [Concomitant]
     Active Substance: MINOCYCLINE HYDROCHLORIDE
     Indication: PROPHYLAXIS
     Dosage: UNK, BID
     Route: 048
     Dates: start: 20160104
  10. PANITUMUMAB [Suspect]
     Active Substance: PANITUMUMAB
     Dosage: 6.0 MG/KG, Q2WK
     Route: 041
     Dates: start: 20160411, end: 20160411
  11. 5-FU                               /00098801/ [Concomitant]
     Active Substance: FLUOROURACIL
     Dosage: 400 MG/M2, Q2WEEKS
     Route: 040
     Dates: start: 20160411, end: 20160502
  12. MYSER                              /01249201/ [Concomitant]
     Active Substance: DIFLUPREDNATE
     Indication: PROPHYLAXIS
     Dosage: UNK, BID
     Route: 062
     Dates: start: 20160104
  13. DECADRON [Concomitant]
     Active Substance: DEXAMETHASONE
     Indication: PROPHYLAXIS
     Dosage: UNK, BID
     Route: 048
     Dates: start: 20160104
  14. ANTEBATE [Concomitant]
     Active Substance: BETAMETHASONE DIPROPIONATE
     Indication: SKIN DISORDER
     Dosage: UNK, QD
     Route: 062
     Dates: start: 20160201
  15. BOCHI SHEET [Concomitant]
     Indication: SKIN DISORDER
     Dosage: UNK UNK, QD
     Route: 062
     Dates: start: 20160201
  16. DRENISON                           /00182901/ [Concomitant]
     Indication: SKIN DISORDER
     Dosage: UNK, QD
     Route: 062
     Dates: start: 20160201
  17. PANITUMUMAB [Suspect]
     Active Substance: PANITUMUMAB
     Dosage: 6.3 MG/KG, Q2WK
     Route: 041
     Dates: start: 20160502, end: 20160502
  18. OXALIPLATIN. [Concomitant]
     Active Substance: OXALIPLATIN
     Indication: RECTAL CANCER
     Dosage: 120 MG, Q2WEEKS
     Route: 041
     Dates: start: 20151221, end: 20160229
  19. CALCIUM LEVOFOLINATE [Concomitant]
     Active Substance: LEVOLEUCOVORIN CALCIUM
     Indication: RECTAL CANCER
     Dosage: 275 MG, Q2WEEKS
     Route: 041
     Dates: start: 20151221, end: 20160229
  20. 5-FU                               /00098801/ [Concomitant]
     Active Substance: FLUOROURACIL
     Indication: RECTAL CANCER
     Dosage: 550 MG, Q2WK
     Route: 040
     Dates: start: 20151221, end: 20160229
  21. 5-FU                               /00098801/ [Concomitant]
     Active Substance: FLUOROURACIL
     Dosage: 2370.4 MG/M2, Q2WEEKS
     Route: 041
     Dates: start: 20160502, end: 20160502
  22. MAGNESIUM OXIDE. [Concomitant]
     Active Substance: MAGNESIUM OXIDE
     Dosage: 1.5 G, UNK
     Route: 048
     Dates: start: 20160229
  23. HIRUDOID [Concomitant]
     Active Substance: GLYCOSAMINOGLYCANS
     Indication: SKIN DISORDER
     Dosage: UNK, QD
     Route: 062
     Dates: start: 20160201
  24. HEPARINOID [Concomitant]
     Active Substance: CHONDROITIN SULFATE (BOVINE)
     Indication: PROPHYLAXIS
     Dosage: UNK, TID
     Route: 062
     Dates: start: 20160104

REACTIONS (10)
  - Peritonitis [Recovered/Resolved]
  - Weight decreased [Recovered/Resolved]
  - Ileus [Recovered/Resolved]
  - Hepatic function abnormal [Recovered/Resolved]
  - Decreased appetite [Recovered/Resolved]
  - Fatigue [Recovered/Resolved]
  - Palmar-plantar erythrodysaesthesia syndrome [Recovered/Resolved]
  - Malaise [Recovered/Resolved]
  - Diverticular perforation [Recovered/Resolved]
  - Neuropathy peripheral [Recovered/Resolved]

NARRATIVE: CASE EVENT DATE: 2016
